FAERS Safety Report 18710142 (Version 6)
Quarter: 2021Q1

REPORT INFORMATION
  Report Type: Report from Study
  Country: None (occurrence: ES)
  Receive Date: 20210106
  Receipt Date: 20210217
  Transmission Date: 20210419
  Serious: Yes (Death, Hospitalization)
  Sender: FDA-Public Use
  Company Number: ES-ABBVIE-21K-144-3717194-00

PATIENT
  Age: 79 Year
  Sex: Female

DRUGS (2)
  1. DUODOPA [Suspect]
     Active Substance: CARBIDOPA\LEVODOPA
     Indication: PARKINSON^S DISEASE
     Route: 050
     Dates: start: 20191212
  2. DUODOPA [Suspect]
     Active Substance: CARBIDOPA\LEVODOPA

REACTIONS (10)
  - Abdominal pain [Recovered/Resolved]
  - Hypophagia [Unknown]
  - Anxiety [Recovered/Resolved]
  - Colon cancer [Not Recovered/Not Resolved]
  - Death [Fatal]
  - Fluid intake reduced [Unknown]
  - Asthenia [Unknown]
  - Bedridden [Unknown]
  - Nervousness [Unknown]
  - Metastases to liver [Not Recovered/Not Resolved]

NARRATIVE: CASE EVENT DATE: 202101
